FAERS Safety Report 6301203-1 (Version None)
Quarter: 2009Q3

REPORT INFORMATION
  Report Type: 
  Country: None (occurrence: None)
  Receive Date: 20090806
  Receipt Date: 20090806
  Transmission Date: 20100115
  Serious: Yes (Hospitalization, Disabling, Other)
  Sender: FDA-Public Use
  Company Number: None

PATIENT
  Age: 5 Month
  Sex: Male
  Weight: 7.5 kg

DRUGS (1)
  1. REGLAN [Suspect]
     Indication: GASTROOESOPHAGEAL REFLUX DISEASE
     Dosage: 7 ML (7MG) 30 MIN BEFORE BED 3XDAY AND BEDTIME LIQUID ORAL
     Route: 048
     Dates: start: 20030317, end: 20030319

REACTIONS (3)
  - CONVULSION [None]
  - PAIN IN EXTREMITY [None]
  - TARDIVE DYSKINESIA [None]
